FAERS Safety Report 21170274 (Version 1)
Quarter: 2022Q3

REPORT INFORMATION
  Report Type: Spontaneous
  Country: JP (occurrence: JP)
  Receive Date: 20220804
  Receipt Date: 20220804
  Transmission Date: 20221027
  Serious: Yes (Other)
  Sender: FDA-Public Use
  Company Number: JP-ALKEM LABORATORIES LIMITED-JP-ALKEM-2022-04410

PATIENT
  Age: 51 Year
  Sex: Female

DRUGS (2)
  1. MESALAMINE [Suspect]
     Active Substance: MESALAMINE
     Indication: Colitis ulcerative
     Dosage: 750 MILLIGRAM, QD
     Route: 065
  2. MESALAMINE [Suspect]
     Active Substance: MESALAMINE
     Dosage: 1500 MILLIGRAM, QD
     Route: 065

REACTIONS (1)
  - Tubulointerstitial nephritis [Recovered/Resolved]
